FAERS Safety Report 25746147 (Version 1)
Quarter: 2025Q3

REPORT INFORMATION
  Report Type: Spontaneous
  Country: US (occurrence: US)
  Receive Date: 20250901
  Receipt Date: 20250901
  Transmission Date: 20251021
  Serious: Yes (Hospitalization, Disabling, Other)
  Sender: AUROBINDO
  Company Number: US-MLMSERVICE-20250813-PI613650-00271-1

PATIENT
  Age: 89 Year
  Sex: Female

DRUGS (1)
  1. PREDNISONE [Suspect]
     Active Substance: PREDNISONE
     Indication: Pain
     Dosage: 2.5 MILLIGRAM, TWO TIMES A DAY, APPROXIMATELY 2 MONTHS
     Route: 048

REACTIONS (2)
  - Herpes zoster disseminated [Recovering/Resolving]
  - Encephalitis herpes [Recovering/Resolving]
